FAERS Safety Report 7971841-9 (Version None)
Quarter: 2011Q4

REPORT INFORMATION
  Report Type: 
  Country: None (occurrence: None)
  Receive Date: 20111212
  Receipt Date: 20111128
  Transmission Date: 20120403
  Serious: Yes (Hospitalization, Other)
  Sender: FDA-Public Use
  Company Number: FR-SANOFI-AVENTIS-2011SA076540

PATIENT
  Age: 55 Year
  Sex: Male
  Weight: 84 kg

DRUGS (5)
  1. AMARYL [Concomitant]
     Dates: start: 20090612
  2. ROSUVASTATIN CALCIUM [Concomitant]
     Dates: start: 20080310
  3. SOLOSTAR [Suspect]
     Indication: DEVICE THERAPY
     Dates: start: 20111025
  4. METFORMIN HCL [Concomitant]
     Dates: start: 20090422
  5. LANTUS [Suspect]
     Route: 058
     Dates: start: 20111025

REACTIONS (3)
  - CRANIOCEREBRAL INJURY [None]
  - LOSS OF CONSCIOUSNESS [None]
  - FALL [None]
